FAERS Safety Report 12805333 (Version 2)
Quarter: 2021Q2

REPORT INFORMATION
  Report Type: Report from Study
  Country: US (occurrence: US)
  Receive Date: 20161004
  Receipt Date: 20210430
  Transmission Date: 20210716
  Serious: Yes (Hospitalization)
  Sender: FDA-Public Use
  Company Number: US-ROCHE-1829909

PATIENT
  Age: 50 Year
  Sex: Male
  Weight: 90.7 kg

DRUGS (8)
  1. TRASTUZUMAB EMTANSINE [Suspect]
     Active Substance: ADO-TRASTUZUMAB EMTANSINE
     Indication: BREAST CANCER METASTATIC
     Route: 042
     Dates: start: 20151110
  2. CHOLECALCIFEROL [Concomitant]
     Active Substance: CHOLECALCIFEROL
     Dosage: 400 UNIT
  3. GABAPENTIN. [Concomitant]
     Active Substance: GABAPENTIN
  4. DEXAMETHASONE. [Concomitant]
     Active Substance: DEXAMETHASONE
  5. OXYCODONE [Concomitant]
     Active Substance: OXYCODONE
  6. TASELISIB. [Suspect]
     Active Substance: TASELISIB
     Indication: BREAST CANCER METASTATIC
     Route: 048
     Dates: start: 20151110, end: 20160926
  7. LACTULOSE. [Concomitant]
     Active Substance: LACTULOSE
  8. OXYCODONE HYDROCHLORIDE. [Concomitant]
     Active Substance: OXYCODONE HYDROCHLORIDE

REACTIONS (3)
  - Disorientation [Unknown]
  - Pneumocystis jirovecii pneumonia [Unknown]
  - Dizziness [Unknown]

NARRATIVE: CASE EVENT DATE: 20160912
